FAERS Safety Report 9958905 (Version 1)
Quarter: 2014Q1

REPORT INFORMATION
  Report Type: Spontaneous
  Country: US (occurrence: US)
  Receive Date: 20140305
  Receipt Date: 20140305
  Transmission Date: 20141002
  Serious: No
  Sender: FDA-Public Use
  Company Number: US-ABBVIE-13P-163-1103373-00

PATIENT
  Age: 36 Year
  Sex: Female
  Weight: 57.2 kg

DRUGS (5)
  1. HUMIRA [Suspect]
     Indication: CROHN^S DISEASE
     Dosage: 160 MILLIGRAM
     Dates: start: 20130121, end: 20130121
  2. HUMIRA [Suspect]
     Dosage: 80 MILLIGRAM ONCE
     Dates: start: 20130204, end: 20130204
  3. HUMIRA [Suspect]
     Dates: start: 20130218, end: 201305
  4. AZATHIOPRINE [Concomitant]
     Indication: CROHN^S DISEASE
  5. ASACOL [Concomitant]
     Indication: CROHN^S DISEASE

REACTIONS (2)
  - Bursitis [Not Recovered/Not Resolved]
  - Herpes zoster [Unknown]
